FAERS Safety Report 21693836 (Version 1)
Quarter: 2022Q4

REPORT INFORMATION
  Report Type: Spontaneous
  Country: FR (occurrence: FR)
  Receive Date: 20221207
  Receipt Date: 20221207
  Transmission Date: 20230113
  Serious: Yes (Life-Threatening)
  Sender: FDA-Public Use
  Company Number: None

PATIENT
  Age: 80 Year
  Sex: Female
  Weight: 81 kg

DRUGS (17)
  1. FUROSEMIDE [Interacting]
     Active Substance: FUROSEMIDE
     Indication: Hypertension
  2. RAMIPRIL [Interacting]
     Active Substance: RAMIPRIL
     Indication: Hypertension
     Dates: end: 20220721
  3. METFORMIN [Concomitant]
     Active Substance: METFORMIN HYDROCHLORIDE
     Dates: end: 20220721
  4. XARELTO [Concomitant]
     Active Substance: RIVAROXABAN
     Dosage: STRENGTH 20 MG
     Dates: end: 20220721
  5. LEVEMIR [Concomitant]
     Active Substance: INSULIN DETEMIR
     Dosage: PENFILL 100 U/ML, SOLUTION FOR INJECTION IN CARTRIDGE
     Dates: end: 20220721
  6. ECONAZOLE [Concomitant]
     Active Substance: ECONAZOLE
     Dates: end: 20220721
  7. Dexeryl [Concomitant]
     Dosage: CREAM IN TUBE
     Dates: end: 20220721
  8. AMLODIPINE [Concomitant]
     Active Substance: AMLODIPINE BESYLATE
     Dates: end: 20220721
  9. BISOPROLOL FUMARATE [Concomitant]
     Active Substance: BISOPROLOL FUMARATE
     Dosage: 1.25 MG
     Dates: end: 20220721
  10. LANSOPRAZOLE [Concomitant]
     Active Substance: LANSOPRAZOLE
     Dates: end: 20220721
  11. KARDEGIC [Concomitant]
     Active Substance: ASPIRIN DL-LYSINE
     Dosage: STRENGTH 75 MG, POWDER FOR ORAL SOLUTION IN SACHET-DOSE
     Dates: end: 20220721
  12. ACETAMINOPHEN [Concomitant]
     Active Substance: ACETAMINOPHEN
     Dates: end: 20220721
  13. FOLIC ACID [Concomitant]
     Active Substance: FOLIC ACID
     Dates: end: 20220721
  14. FERROUS FUMARATE [Concomitant]
     Active Substance: FERROUS FUMARATE
     Dosage: STRENGTH 66 MG
     Dates: end: 20220721
  15. LACTULOSE [Concomitant]
     Active Substance: LACTULOSE
     Dates: end: 20220721
  16. ATORVASTATIN [Concomitant]
     Active Substance: ATORVASTATIN
     Dates: end: 20220721
  17. CHOLECALCIFEROL [Concomitant]
     Active Substance: CHOLECALCIFEROL
     Dosage: 100,000 IU, ORAL SOLUTION IN AMPOULE
     Dates: end: 20220721

REACTIONS (3)
  - Hyperkalaemia [Recovered/Resolved]
  - Drug interaction [Unknown]
  - Acute kidney injury [Recovering/Resolving]

NARRATIVE: CASE EVENT DATE: 20220721
